FAERS Safety Report 13351283 (Version 1)
Quarter: 2017Q1

REPORT INFORMATION
  Report Type: Spontaneous
  Country: CA (occurrence: CA)
  Receive Date: 20170320
  Receipt Date: 20170320
  Transmission Date: 20170429
  Serious: Yes (Hospitalization, Other)
  Sender: FDA-Public Use
  Company Number: CA-INCYTE CORPORATION-2017IN001910

PATIENT
  Age: 84 Year
  Sex: Female

DRUGS (1)
  1. JAKAVI [Suspect]
     Active Substance: RUXOLITINIB
     Indication: MYELOFIBROSIS
     Dosage: 25 MG, QD (10MG MORNING AND 15MG HS)
     Route: 065

REACTIONS (5)
  - Loss of consciousness [Unknown]
  - Withdrawal syndrome [Unknown]
  - Carbon dioxide increased [Unknown]
  - Pleural effusion [Unknown]
  - Platelet count decreased [Unknown]

NARRATIVE: CASE EVENT DATE: 20170217
